FAERS Safety Report 16575432 (Version 3)
Quarter: 2019Q3

REPORT INFORMATION
  Report Type: Spontaneous
  Country: AR (occurrence: AR)
  Receive Date: 20190716
  Receipt Date: 20190909
  Transmission Date: 20191004
  Serious: Yes (Hospitalization, Other)
  Sender: FDA-Public Use
  Company Number: AR-AMGEN-ARGSP2019113345

PATIENT
  Age: 71 Year
  Sex: Female

DRUGS (3)
  1. CALCITRIOL. [Concomitant]
     Active Substance: CALCITRIOL
     Dosage: 5 MICROGRAM, CYCLICAL (DAILY, MONDAY TO FRIDAY, SATURDAY AND SUNDAY REST)
  2. ACIFOL [FOLIC ACID] [Concomitant]
     Dosage: 1 MILLIGRAM, CYCLICAL (DAILY MONDAY TO FRIDAY, REST SATURDAY AND SUNDAY)
  3. ENBREL [Suspect]
     Active Substance: ETANERCEPT
     Indication: RHEUMATOID ARTHRITIS
     Dosage: 50 MILLIGRAM, QWK
     Route: 065
     Dates: start: 20060202

REACTIONS (2)
  - Fall [Recovering/Resolving]
  - Hip fracture [Recovering/Resolving]

NARRATIVE: CASE EVENT DATE: 201906
